FAERS Safety Report 9197943 (Version 1)
Quarter: 2013Q1

REPORT INFORMATION
  Report Type: Spontaneous
  Country: SE (occurrence: SE)
  Receive Date: 20130328
  Receipt Date: 20130328
  Transmission Date: 20140127
  Serious: Yes (Life-Threatening)
  Sender: FDA-Public Use
  Company Number: SE-B.I. PHARMACEUTICALS,INC./RIDGEFIELD-2013-SW-00179SW

PATIENT
  Age: 83 Year
  Sex: Male

DRUGS (10)
  1. PRADAXA [Suspect]
     Indication: ATRIAL FIBRILLATION
     Dosage: 220 MG
     Route: 048
     Dates: start: 20120621
  2. OMEPRAZOL [Concomitant]
  3. METOPROLOL [Concomitant]
  4. RAMIPRIL [Concomitant]
  5. TRAMADOL [Concomitant]
  6. TRIOBE [Concomitant]
  7. PANODIL [Concomitant]
  8. LASIX RETARD [Concomitant]
  9. ALLOPURINOL [Concomitant]
  10. FORLAX [Concomitant]

REACTIONS (4)
  - C-reactive protein increased [Recovered/Resolved]
  - Pancreatitis [Recovered/Resolved]
  - Amylase increased [Recovered/Resolved]
  - Abdominal pain [Recovered/Resolved]
